FAERS Safety Report 8583503-8 (Version None)
Quarter: 2012Q3

REPORT INFORMATION
  Report Type: 
  Country: None (occurrence: None)
  Receive Date: 20120809
  Receipt Date: 20120806
  Transmission Date: 20120928
  Serious: Yes (Life-Threatening, Hospitalization, Other)
  Sender: FDA-Public Use
  Company Number: BE-ABBOTT-12P-013-0965276-00

PATIENT
  Sex: Female
  Weight: 56 kg

DRUGS (2)
  1. HUMIRA [Suspect]
     Indication: RHEUMATOID ARTHRITIS
     Dates: start: 20080801, end: 20111101
  2. HUMIRA [Suspect]
     Dates: start: 20120301

REACTIONS (18)
  - VASCULITIS GASTROINTESTINAL [None]
  - RHEUMATIC HEART DISEASE [None]
  - OEDEMA PERIPHERAL [None]
  - DECUBITUS ULCER [None]
  - SMALL INTESTINAL HAEMORRHAGE [None]
  - CONGESTIVE CARDIOMYOPATHY [None]
  - WEIGHT DECREASED [None]
  - RHEUMATOID ARTHRITIS [None]
  - PULMONARY OEDEMA [None]
  - ENTEROCOCCAL SEPSIS [None]
  - DEHYDRATION [None]
  - MELAENA [None]
  - MALNUTRITION [None]
  - SMALL INTESTINAL ULCER HAEMORRHAGE [None]
  - PNEUMONIA [None]
  - PRERENAL FAILURE [None]
  - APHTHOUS STOMATITIS [None]
  - URINARY TRACT INFECTION [None]
